FAERS Safety Report 5506402-4 (Version None)
Quarter: 2007Q4

REPORT INFORMATION
  Report Type: 
  Country: None (occurrence: None)
  Receive Date: 20071105
  Receipt Date: 20071025
  Transmission Date: 20080405
  Serious: Yes (Other)
  Sender: FDA-Public Use
  Company Number: US-JNJFOC-20071007315

PATIENT
  Age: 34 Year
  Sex: Female
  Weight: 65.77 kg

DRUGS (2)
  1. TOPAMAX [Suspect]
     Indication: MIGRAINE
     Route: 048
  2. LOESTRIN 1.5/30 [Concomitant]
     Indication: CONTRACEPTION
     Route: 048

REACTIONS (5)
  - ACCIDENTAL EXPOSURE [None]
  - DIZZINESS [None]
  - HEADACHE [None]
  - HEART RATE INCREASED [None]
  - PARAESTHESIA [None]
